FAERS Safety Report 10652157 (Version 2)
Quarter: 2014Q4

REPORT INFORMATION
  Report Type: Spontaneous
  Country: US (occurrence: US)
  Receive Date: 20141215
  Receipt Date: 20141222
  Transmission Date: 20150529
  Serious: Yes (Death, Hospitalization)
  Sender: FDA-Public Use
  Company Number: US-BAXTER-2014BAX072341

PATIENT
  Age: 74 Year
  Sex: Male

DRUGS (1)
  1. 0.9% SODIUM CHLORIDE INJECTION [Suspect]
     Active Substance: SODIUM CHLORIDE
     Indication: CATHETER MANAGEMENT
     Route: 042
     Dates: end: 20141120

REACTIONS (2)
  - Confusional state [Not Recovered/Not Resolved]
  - Brain neoplasm malignant [Fatal]

NARRATIVE: CASE EVENT DATE: 20141120
